FAERS Safety Report 6568349-4 (Version None)
Quarter: 2010Q1

REPORT INFORMATION
  Report Type: 
  Country: None (occurrence: None)
  Receive Date: 20100128
  Receipt Date: 20100115
  Transmission Date: 20100710
  Serious: Yes (Other)
  Sender: FDA-Public Use
  Company Number: 8055033

PATIENT
  Age: 36 Year
  Sex: Male

DRUGS (2)
  1. KEPPRA [Suspect]
     Indication: GRAND MAL CONVULSION
     Dosage: 1000 MG BID ORAL
     Dates: start: 20020101, end: 20091201
  2. ANTIOXIDANT [Concomitant]

REACTIONS (3)
  - ALCOHOL USE [None]
  - DRUG TOLERANCE [None]
  - GRAND MAL CONVULSION [None]
